FAERS Safety Report 7953651-1 (Version None)
Quarter: 2011Q4

REPORT INFORMATION
  Report Type: 
  Country: None (occurrence: None)
  Receive Date: 20111202
  Receipt Date: 20111129
  Transmission Date: 20120403
  Serious: Yes (Disabling)
  Sender: FDA-Public Use
  Company Number: GB-PFIZER INC-2011244871

PATIENT
  Age: 64 Year
  Sex: Female
  Weight: 78.5 kg

DRUGS (15)
  1. METRONIDAZOLE [Suspect]
     Indication: PELVIC SEPSIS
     Dosage: 500 MG, 3X/DAY
     Route: 042
     Dates: start: 20110916, end: 20110922
  2. MORPHINE [Concomitant]
  3. OXYCONTIN [Concomitant]
  4. CHLORPHENAMINE [Concomitant]
  5. CIPROFLOXACIN [Concomitant]
  6. DIPROBASE, UNSPECIFIED [Concomitant]
  7. ENOXAPARIN [Concomitant]
  8. OXYCODONE HCL [Concomitant]
  9. CEFUROXIME [Concomitant]
  10. CYCLIZINE [Concomitant]
  11. PARACETAMOL [Concomitant]
  12. AQUEOUS CREAM [Concomitant]
  13. CODEINE [Concomitant]
  14. FUSIDIC ACID [Concomitant]
  15. HYDROXYZINE [Concomitant]

REACTIONS (3)
  - RASH GENERALISED [None]
  - RASH MACULO-PAPULAR [None]
  - RASH ERYTHEMATOUS [None]
